FAERS Safety Report 9284113 (Version 1)
Quarter: 2013Q2

REPORT INFORMATION
  Report Type: Spontaneous
  Country: IN (occurrence: None)
  Receive Date: 20130502
  Receipt Date: 20130502
  Transmission Date: 20140414
  Serious: Yes (Other)
  Sender: FDA-Public Use
  Company Number: SYM-2013-03261

PATIENT
  Sex: 0

DRUGS (3)
  1. FLUOROURACIL (FLUOROURACIL) (FLUOROURACIL) [Suspect]
     Indication: GASTRIC CANCER
  2. OXALIPLATIN (OXALIPLATIN) (OXALIPLATIN) [Suspect]
     Indication: GASTRIC CANCER
     Dosage: EVERY CYCLE
  3. EPIRUBICIN (EPIRUBICIN) (EPIRUBICIN) [Suspect]
     Indication: GASTRIC CANCER
     Dosage: EVERY CYCLE

REACTIONS (1)
  - Mucosal inflammation [None]
